FAERS Safety Report 12243143 (Version 1)
Quarter: 2016Q2

REPORT INFORMATION
  Report Type: Spontaneous
  Country: US (occurrence: US)
  Receive Date: 20160406
  Receipt Date: 20160406
  Transmission Date: 20160815
  Serious: No
  Sender: FDA-Public Use
  Company Number: US-SA-2015SA032451

PATIENT
  Age: 73 Year
  Sex: Female

DRUGS (1)
  1. ALLEGRA-D [Suspect]
     Active Substance: FEXOFENADINE\PSEUDOEPHEDRINE
     Indication: HYPERSENSITIVITY
     Dosage: TAKEN FROM: 1 WEEK AGO?DOSE: 180MG/240MG
     Route: 048
     Dates: end: 20150312

REACTIONS (4)
  - Insomnia [Unknown]
  - Ocular discomfort [Unknown]
  - Anxiety [Unknown]
  - Heart rate increased [Unknown]
